FAERS Safety Report 16725424 (Version 1)
Quarter: 2019Q4

REPORT INFORMATION
  Report Type: Spontaneous
  Country: US (occurrence: US)
  Receive Date: 20190820
  Receipt Date: 20190820
  Transmission Date: 20200122
  Serious: Yes (Other)
  Sender: FDA-Public Use
  Company Number: None

PATIENT
  Age: 56 Year
  Sex: Female

DRUGS (1)
  1. IBRANCE [Suspect]
     Active Substance: PALBOCICLIB
     Indication: BREAST CANCER
     Dosage: ?          OTHER FREQUENCY:1 QD 21 D, 7D OFF;?
     Route: 048
     Dates: start: 20190104, end: 20190720

REACTIONS (1)
  - Disease progression [None]

NARRATIVE: CASE EVENT DATE: 20190720
